FAERS Safety Report 23198473 (Version 2)
Quarter: 2024Q4

REPORT INFORMATION
  Report Type: Spontaneous
  Country: US (occurrence: US)
  Receive Date: 20231117
  Receipt Date: 20241010
  Transmission Date: 20250115
  Serious: Yes (Other)
  Sender: PFIZER
  Company Number: US-PFIZER INC-202300369634

PATIENT
  Age: 77 Year
  Sex: Female

DRUGS (1)
  1. XELJANZ XR [Suspect]
     Active Substance: TOFACITINIB CITRATE
     Indication: Rheumatoid arthritis
     Dosage: 11 MG, 1X/DAY
     Route: 048

REACTIONS (7)
  - Fall [Recovering/Resolving]
  - Rib fracture [Recovering/Resolving]
  - Wrist fracture [Recovering/Resolving]
  - Dependence [Unknown]
  - Product dose omission issue [Unknown]
  - Digestive enzyme abnormal [Unknown]
  - Osteoporosis [Unknown]
